FAERS Safety Report 5909840-0 (Version None)
Quarter: 2008Q4

REPORT INFORMATION
  Report Type: 
  Country: None (occurrence: None)
  Receive Date: 20081007
  Receipt Date: 20081006
  Transmission Date: 20090506
  Serious: Yes (Other)
  Sender: FDA-Public Use
  Company Number: US-BRISTOL-MYERS SQUIBB COMPANY-14359061

PATIENT
  Age: 45 Year
  Sex: Female
  Weight: 88 kg

DRUGS (2)
  1. COUMADIN [Suspect]
     Indication: FACTOR V LEIDEN MUTATION
     Dosage: CURRENT DOSAGE IS 9MG QD
     Dates: start: 20011101
  2. PREDNISONE [Concomitant]

REACTIONS (1)
  - AUTOIMMUNE HEPATITIS [None]
